FAERS Safety Report 4952146-7 (Version None)
Quarter: 2006Q1

REPORT INFORMATION
  Report Type: 
  Country: None (occurrence: None)
  Receive Date: 20060323
  Receipt Date: 20060317
  Transmission Date: 20060701
  Serious: Yes (Life-Threatening, Hospitalization)
  Sender: FDA-Public Use
  Company Number: PHRM2006FR01077

PATIENT
  Age: 22 Year
  Sex: Female

DRUGS (4)
  1. TEGRETOL [Suspect]
     Indication: INTENTIONAL OVERDOSE
     Dosage: 800 MG, ONCE/SINGLE
     Route: 048
     Dates: start: 20060116, end: 20060116
  2. DONORMYL [Suspect]
     Indication: INTENTIONAL OVERDOSE
     Dosage: 2700 MG, ONCE/SINGLE
     Route: 048
     Dates: start: 20060116, end: 20060116
  3. DIPIPERON [Suspect]
     Indication: INTENTIONAL OVERDOSE
     Dosage: 7 BLISTERS
     Route: 048
     Dates: start: 20060116, end: 20060116
  4. STILNOX [Suspect]
     Indication: INTENTIONAL OVERDOSE
     Dosage: 70 MG, ONCE/SINGLE
     Route: 048
     Dates: start: 20060116, end: 20060116

REACTIONS (15)
  - ACUTE PULMONARY OEDEMA [None]
  - AGITATION [None]
  - ASPIRATION [None]
  - BLOOD ETHANOL INCREASED [None]
  - COMA [None]
  - CONVULSION [None]
  - DRUG LEVEL INCREASED [None]
  - GLASGOW COMA SCALE ABNORMAL [None]
  - HAEMODYNAMIC INSTABILITY [None]
  - INTENTIONAL OVERDOSE [None]
  - INTUBATION [None]
  - LOSS OF CONSCIOUSNESS [None]
  - MYDRIASIS [None]
  - RESPIRATORY ACIDOSIS [None]
  - RESPIRATORY DISORDER [None]
